FAERS Safety Report 23296395 (Version 1)
Quarter: 2023Q4

REPORT INFORMATION
  Report Type: Spontaneous
  Country: US (occurrence: None)
  Receive Date: 20231214
  Receipt Date: 20231214
  Transmission Date: 20240110
  Serious: No
  Sender: FDA-Public Use
  Company Number: None

PATIENT
  Age: 78 Year
  Sex: Female
  Weight: 48.6 kg

DRUGS (1)
  1. PIQRAY [Suspect]
     Active Substance: ALPELISIB
     Dosage: FREQUENCY : DAILY;?
     Route: 048
     Dates: start: 20231120

REACTIONS (2)
  - Oral pain [None]
  - Fatigue [None]

NARRATIVE: CASE EVENT DATE: 20231213
